FAERS Safety Report 19946613 (Version 1)
Quarter: 2021Q4

REPORT INFORMATION
  Report Type: Spontaneous
  Country: HR (occurrence: HR)
  Receive Date: 20211012
  Receipt Date: 20211012
  Transmission Date: 20220303
  Serious: Yes (Hospitalization, Other)
  Sender: FDA-Public Use
  Company Number: None

PATIENT
  Sex: Male
  Weight: 90 kg

DRUGS (15)
  1. PANTOPRAZOLE [Suspect]
     Active Substance: PANTOPRAZOLE
     Indication: Product used for unknown indication
     Dosage: 40 MILLIGRAM, QD
     Route: 065
  2. FUROSEMIDE [Suspect]
     Active Substance: FUROSEMIDE
     Indication: Product used for unknown indication
     Dosage: 40 MILLIGRAM, QD
  3. FUROSEMIDE [Suspect]
     Active Substance: FUROSEMIDE
     Dosage: 500 MILLIGRAM 500 MG, (? TABLET IN THE MORNING)
     Route: 065
  4. FUROSEMIDE [Suspect]
     Active Substance: FUROSEMIDE
     Dosage: 80 MILLIGRAM, QD (40 MG, BID (1,1,0)0
     Route: 065
  5. SACUBITRIL\VALSARTAN [Suspect]
     Active Substance: SACUBITRIL\VALSARTAN
     Indication: Cardiac failure
     Dosage: 2 DOSAGE FORM, QD, 1 DF, BID, (97/103MG)
     Route: 065
  6. SACUBITRIL\VALSARTAN [Suspect]
     Active Substance: SACUBITRIL\VALSARTAN
     Dosage: 2 DOSAGE FORM,1 DF, BID, (49/51 MG)
     Route: 065
  7. METHYLPREDNISOLONE [Concomitant]
     Active Substance: METHYLPREDNISOLONE
     Indication: Product used for unknown indication
     Dosage: UNK
  8. EPLERENONE [Concomitant]
     Active Substance: EPLERENONE
     Indication: Product used for unknown indication
     Dosage: 1 DOSAGE FORM, QD
  9. AZATHIOPRINE [Concomitant]
     Active Substance: AZATHIOPRINE
     Indication: Product used for unknown indication
     Dosage: 4 DOSAGE FORM, BID (4 DF, (2,0,2))
     Route: 065
  10. SOTALOL [Concomitant]
     Active Substance: SOTALOL
     Indication: Product used for unknown indication
     Dosage: 80 MILLIGRAM, QD (40 MG, BID)
     Route: 065
  11. SOTALOL [Concomitant]
     Active Substance: SOTALOL
     Dosage: UNK (80+40 MG)
     Route: 065
  12. PIRIDOSTIGMINA [Concomitant]
     Indication: Product used for unknown indication
     Dosage: 5 DOSAGE FORM
  13. RIVAROXABAN [Concomitant]
     Active Substance: RIVAROXABAN
     Indication: Product used for unknown indication
     Dosage: 1 DOSAGE FORM, QD
     Route: 065
  14. LOSARTAN [Concomitant]
     Active Substance: LOSARTAN
     Indication: Product used for unknown indication
     Dosage: 1 DOSAGE FORM, QD
     Route: 065
  15. LEVOTHYROXINE [Concomitant]
     Active Substance: LEVOTHYROXINE
     Indication: Product used for unknown indication
     Dosage: 1 DOSAGE FORM, QD
     Route: 065

REACTIONS (12)
  - Dysphonia [Unknown]
  - Myasthenia gravis [Unknown]
  - Dysarthria [Unknown]
  - Mastication disorder [Unknown]
  - Eyelid ptosis [Unknown]
  - Ventricular tachycardia [Unknown]
  - COVID-19 pneumonia [Unknown]
  - Palpitations [Unknown]
  - Dyspnoea [Unknown]
  - Dysphagia [Unknown]
  - Cardiac failure [Unknown]
  - Wrong technique in product usage process [Unknown]

NARRATIVE: CASE EVENT DATE: 20191201
